FAERS Safety Report 20249528 (Version 1)
Quarter: 2021Q4

REPORT INFORMATION
  Report Type: Spontaneous
  Country: DE (occurrence: DE)
  Receive Date: 20211229
  Receipt Date: 20211229
  Transmission Date: 20220303
  Serious: Yes (Hospitalization)
  Sender: FDA-Public Use
  Company Number: DE-ADRED-07700-01

PATIENT
  Age: 47 Year
  Sex: Female
  Weight: 81 kg

DRUGS (12)
  1. PEMETREXED [Suspect]
     Active Substance: PEMETREXED
     Dosage: SCHEME
  2. CARBOPLATIN [Suspect]
     Active Substance: CARBOPLATIN
     Dosage: SCHEME
  3. BEVACIZUMAB [Suspect]
     Active Substance: BEVACIZUMAB
     Dosage: SCHEME
  4. HYDROMORPHONE [Concomitant]
     Active Substance: HYDROMORPHONE
     Dosage: 2.6 MG, REQUIREMENT
  5. EBASTINE [Concomitant]
     Active Substance: EBASTINE
     Dosage: 10 MILLIGRAM DAILY; 10 MG, 0-0-0-1
  6. AMITRIPTYLINE [Concomitant]
     Active Substance: AMITRIPTYLINE
     Dosage: 10 MILLIGRAM DAILY; 10 MG, 0-0-0-1
  7. ASPIRIN [Concomitant]
     Active Substance: ASPIRIN
     Dosage: 100 MILLIGRAM DAILY; 100 MG, 0-1-0-0
  8. Macrogol/Kaliumchlorid/Natriumcarbonat/Natriumchlorid [Concomitant]
     Dosage: REQUIREMENT
  9. FOLIC ACID [Concomitant]
     Active Substance: FOLIC ACID
     Dosage: .4 MILLIGRAM DAILY; 0.4 MG, 1-0-0-0
  10. LEVOTHYROXINE SODIUM [Concomitant]
     Active Substance: LEVOTHYROXINE SODIUM
     Dosage: 100 MICROGRAM DAILY; 100 MCG, 1-0-0-0
  11. ASCORBIC ACID [Concomitant]
     Active Substance: ASCORBIC ACID
     Dosage: 1 DOSAGE FORMS DAILY; 0-1-0-0
  12. PANTOPRAZOLE SODIUM [Concomitant]
     Active Substance: PANTOPRAZOLE SODIUM
     Dosage: 40 MILLIGRAM DAILY; 40 MG, 1-0-0-0

REACTIONS (7)
  - Tachycardia [Unknown]
  - Condition aggravated [Unknown]
  - Systemic infection [Unknown]
  - Anaemia [Unknown]
  - Abdominal pain upper [Unknown]
  - General physical health deterioration [Unknown]
  - Musculoskeletal pain [Unknown]
